FAERS Safety Report 9464266 (Version 1)
Quarter: 2013Q3

REPORT INFORMATION
  Report Type: Spontaneous
  Country: FR (occurrence: FR)
  Receive Date: 20130819
  Receipt Date: 20130819
  Transmission Date: 20140515
  Serious: Yes (Hospitalization)
  Sender: FDA-Public Use
  Company Number: FR-PFIZER INC-2013234988

PATIENT
  Age: 83 Year
  Sex: Female

DRUGS (10)
  1. TRIFLUCAN [Suspect]
     Indication: ANTIBIOTIC THERAPY
     Dosage: 100 MG, DAILY
     Dates: start: 20130503, end: 20130506
  2. TIENAM [Suspect]
     Indication: ANTIBIOTIC THERAPY
     Dosage: 500 MG, 4X/DAY
     Route: 048
     Dates: start: 20130503, end: 20130506
  3. ATENOLOL [Concomitant]
     Dosage: 75 MG, DAILY
  4. SERESTA [Concomitant]
     Dosage: 10 MG, DAILY
  5. FORLAX [Concomitant]
     Dosage: 10 G, DAILY
  6. LERCAN [Concomitant]
     Dosage: 20 MG, DAILY
  7. INSULIN ASPART [Concomitant]
     Dosage: UNK
     Dates: end: 20130502
  8. PARACETAMOL [Concomitant]
     Dosage: 4 G, DAILY
     Dates: end: 20130506
  9. CETIRIZINE [Concomitant]
     Dosage: 10 MG, 1X/DAY
     Dates: end: 20130506
  10. NOVORAPID [Concomitant]
     Dosage: UNK
     Dates: start: 20130502, end: 20130506

REACTIONS (1)
  - Convulsion [Recovered/Resolved]
